FAERS Safety Report 7383919-1 (Version None)
Quarter: 2011Q1

REPORT INFORMATION
  Report Type: 
  Country: None (occurrence: None)
  Receive Date: 20110330
  Receipt Date: 20110310
  Transmission Date: 20110831
  Serious: No
  Sender: FDA-Public Use
  Company Number: US-MYLANLABS-2011S1002113

PATIENT
  Age: 73 Year
  Sex: Male
  Weight: 104.33 kg

DRUGS (12)
  1. FLOMAX /01280302/ [Concomitant]
     Indication: BENIGN PROSTATIC HYPERPLASIA
  2. ADVIL LIQUI-GELS [Concomitant]
  3. HUMALOG [Concomitant]
     Indication: DIABETES MELLITUS
     Dosage: SLIDING SCALE
     Dates: start: 19980101
  4. PRAVASTATIN [Concomitant]
     Indication: BLOOD CHOLESTEROL INCREASED
     Dates: start: 19980101
  5. ACETAMINOPHEN [Concomitant]
  6. REGULAR INSULIN [Concomitant]
     Indication: DIABETES MELLITUS
     Dosage: SLIDING SCALE
     Dates: start: 19980101
  7. ASPIRIN [Concomitant]
     Indication: PROPHYLAXIS
     Dates: start: 19980101
  8. NEURONTIN [Concomitant]
     Indication: NEUROPATHY PERIPHERAL
     Dates: start: 20101101
  9. AZATHIOPRINE [Concomitant]
     Indication: PROPHYLAXIS AGAINST TRANSPLANT REJECTION
     Dates: start: 19980101
  10. PRILOSEC [Concomitant]
     Indication: GASTROOESOPHAGEAL REFLUX DISEASE
     Dosage: AS NEEDED
  11. CAPTOPRIL [Concomitant]
     Indication: BLOOD PRESSURE
     Dates: start: 19980101
  12. TACROLIMUS [Suspect]
     Indication: PROPHYLAXIS AGAINST TRANSPLANT REJECTION
     Route: 048
     Dates: start: 20100101

REACTIONS (1)
  - BACK PAIN [None]
